FAERS Safety Report 13543098 (Version 1)
Quarter: 2017Q2

REPORT INFORMATION
  Report Type: Spontaneous
  Country: US (occurrence: US)
  Receive Date: 20170512
  Receipt Date: 20170512
  Transmission Date: 20170830
  Serious: Yes (Life-Threatening, Hospitalization)
  Sender: FDA-Public Use
  Company Number: None

PATIENT
  Age: 69 Year
  Sex: Male
  Weight: 85.5 kg

DRUGS (8)
  1. IBUPROFIN [Concomitant]
  2. PANTOPRAZOLE [Concomitant]
     Active Substance: PANTOPRAZOLE
  3. HYDRACORTISONE CREAM [Concomitant]
  4. REDD REMEDIES NERVE SHIELD [Concomitant]
  5. CLOTRIMAZOLE GEL [Concomitant]
  6. PURE ONE DAILY (VEGGIE MULTIVITAMIN) [Concomitant]
  7. LORATADINE. [Concomitant]
     Active Substance: LORATADINE
  8. CARBAMAZEPINE 200MG [Suspect]
     Active Substance: CARBAMAZEPINE
     Indication: FACIAL SPASM
     Dosage: ?          QUANTITY:1 TABLET(S);?
     Route: 048
     Dates: start: 20170404, end: 20170427

REACTIONS (3)
  - Petechiae [None]
  - Haemorrhage [None]
  - Platelet count decreased [None]

NARRATIVE: CASE EVENT DATE: 20170427
